FAERS Safety Report 13908847 (Version 1)
Quarter: 2017Q3

REPORT INFORMATION
  Report Type: Spontaneous
  Country: FR (occurrence: FR)
  Receive Date: 20170828
  Receipt Date: 20170828
  Transmission Date: 20171127
  Serious: Yes (Life-Threatening, Other)
  Sender: FDA-Public Use
  Company Number: FR-BAXTER-2016BAX059265

PATIENT
  Age: 36 Year
  Sex: Male
  Weight: 93 kg

DRUGS (51)
  1. BICNU [Suspect]
     Active Substance: CARMUSTINE
     Indication: BONE MARROW CONDITIONING REGIMEN
     Dosage: SINGLE DOSE (INFUSION), CONDITIONING COURSE ACCORDING TO BEAC PROTOCOL (EQUIVALENT TO 600 MG SINGLE
     Route: 042
     Dates: start: 20161103, end: 20161103
  2. CYTARABINE KABI [Suspect]
     Active Substance: CYTARABINE
     Indication: BONE MARROW CONDITIONING REGIMEN
     Dosage: (INFUSION), CONDITIONING COURSE ACCORDING TO BEAC PROTOCOL (EQUIVALENT TO 400 MG), FROM DAY -6 TO DA
     Route: 042
     Dates: start: 20161104, end: 20161107
  3. ETOPOSIDE MYLAN [Suspect]
     Active Substance: ETOPOSIDE
     Indication: BONE MARROW CONDITIONING REGIMEN
     Dosage: (INFUSION), CONDITIONING COURSE ACCORDING TO BEAC PROTOCOL, (EQUIVALENT TO 200MG), DAY -6
     Route: 042
     Dates: start: 20161104, end: 20161104
  4. DOXORUBICIN [Suspect]
     Active Substance: DOXORUBICIN
     Indication: HIGH GRADE B-CELL LYMPHOMA BURKITT-LIKE LYMPHOMA
     Dosage: 2 COURSES OF R-CHOP PROTOCOL
     Route: 065
     Dates: start: 2016
  5. ZOPHREN [Suspect]
     Active Substance: ONDANSETRON
     Route: 042
     Dates: start: 20161108, end: 20161108
  6. POLARAMINE [Suspect]
     Active Substance: DEXCHLORPHENIRAMINE MALEATE
     Indication: PRODUCT USED FOR UNKNOWN INDICATION
     Route: 065
     Dates: start: 20161103, end: 20161103
  7. PARACETAMOL [Suspect]
     Active Substance: ACETAMINOPHEN
     Route: 042
     Dates: start: 20161108, end: 20161108
  8. SOLU-MEDROL [Suspect]
     Active Substance: METHYLPREDNISOLONE SODIUM SUCCINATE
     Route: 042
     Dates: start: 20161105, end: 20161105
  9. MESNA EG [Suspect]
     Active Substance: MESNA
     Route: 042
     Dates: start: 20161106, end: 20161106
  10. PRIMPERAN [Suspect]
     Active Substance: METOCLOPRAMIDE HYDROCHLORIDE
     Route: 065
     Dates: start: 20161108, end: 20161108
  11. SMECTA [Suspect]
     Active Substance: MONTMORILLONITE
     Indication: PRODUCT USED FOR UNKNOWN INDICATION
     Route: 065
     Dates: start: 20161107, end: 20161107
  12. PARACETAMOL [Suspect]
     Active Substance: ACETAMINOPHEN
     Indication: PRODUCT USED FOR UNKNOWN INDICATION
     Route: 042
     Dates: start: 20161103, end: 20161103
  13. SOLU-MEDROL [Suspect]
     Active Substance: METHYLPREDNISOLONE SODIUM SUCCINATE
     Indication: PRODUCT USED FOR UNKNOWN INDICATION
     Route: 042
     Dates: start: 20161104, end: 20161104
  14. PRIMPERAN [Suspect]
     Active Substance: METOCLOPRAMIDE HYDROCHLORIDE
     Route: 065
     Dates: start: 20161107, end: 20161107
  15. ZOPHREN [Suspect]
     Active Substance: ONDANSETRON
     Route: 042
     Dates: start: 20161109, end: 20161109
  16. SOLU-MEDROL [Suspect]
     Active Substance: METHYLPREDNISOLONE SODIUM SUCCINATE
     Route: 042
     Dates: start: 20161106, end: 20161106
  17. MESNA EG [Suspect]
     Active Substance: MESNA
     Route: 042
     Dates: start: 20161108, end: 20161108
  18. ENDOXAN 1000 MG, POUDRE POUR SOLUTION INJECTABLE [Suspect]
     Active Substance: CYCLOPHOSPHAMIDE
     Indication: HIGH GRADE B-CELL LYMPHOMA BURKITT-LIKE LYMPHOMA
     Dosage: 2 COURSES OF R-CHOP PROTOCOL
     Route: 065
     Dates: start: 2016
  19. ZOPHREN [Suspect]
     Active Substance: ONDANSETRON
     Indication: PRODUCT USED FOR UNKNOWN INDICATION
     Route: 042
     Dates: start: 20161104, end: 20161104
  20. SOLU-MEDROL [Suspect]
     Active Substance: METHYLPREDNISOLONE SODIUM SUCCINATE
     Route: 042
     Dates: start: 20161107, end: 20161107
  21. SOLU-MEDROL [Suspect]
     Active Substance: METHYLPREDNISOLONE SODIUM SUCCINATE
     Route: 042
     Dates: start: 20161108, end: 20161108
  22. PRIMPERAN [Suspect]
     Active Substance: METOCLOPRAMIDE HYDROCHLORIDE
     Indication: PRODUCT USED FOR UNKNOWN INDICATION
     Route: 065
     Dates: start: 20161106, end: 20161106
  23. ENDOXAN 1000 MG, POUDRE POUR SOLUTION INJECTABLE [Suspect]
     Active Substance: CYCLOPHOSPHAMIDE
     Dosage: (EQUIVALENT TO 3000 MG) (INFUSION), CONDITIONING COURSE ACCORDING TO BEAC PROTOCOL, DAY3 TO DAY6
     Route: 042
     Dates: start: 20161104, end: 20161107
  24. ETOPOSIDE MYLAN [Suspect]
     Active Substance: ETOPOSIDE
     Dosage: (INFUSION), CONDITIONING COURSE ACCORDING TO BEAC PROTOCOL,(EQUIVALENT TO 200MG), DAY -3
     Route: 042
     Dates: start: 20161107, end: 20161107
  25. LARGACTIL [Suspect]
     Active Substance: CHLORPROMAZINE
     Indication: PRODUCT USED FOR UNKNOWN INDICATION
     Route: 065
     Dates: start: 20161109, end: 20161109
  26. LASILIX [Suspect]
     Active Substance: FUROSEMIDE
     Indication: PRODUCT USED FOR UNKNOWN INDICATION
     Route: 065
     Dates: start: 20161109, end: 20161109
  27. ETOPOPHOS [Suspect]
     Active Substance: ETOPOSIDE PHOSPHATE
     Indication: BONE MARROW CONDITIONING REGIMEN
     Dosage: LYOPHILISATE FOR PARENTERAL USE (INFUSION), CONDITIONING COURSE ACCORDING TO BEAC PROTOCOL
     Route: 042
     Dates: start: 20161105, end: 20161105
  28. VINCRISTINE [Suspect]
     Active Substance: VINCRISTINE
     Dosage: 4 COURSES OF R-CHOP WITH METHOTREXATE
     Route: 065
     Dates: start: 2016
  29. METHOTREXATE. [Suspect]
     Active Substance: METHOTREXATE
     Indication: HIGH GRADE B-CELL LYMPHOMA BURKITT-LIKE LYMPHOMA
     Dosage: 4 COURSES WITH R-CHOP PROTOCOL
     Route: 065
     Dates: start: 2016
  30. MESNA EG [Suspect]
     Active Substance: MESNA
     Indication: PRODUCT USED FOR UNKNOWN INDICATION
     Route: 042
     Dates: start: 20161105, end: 20161105
  31. MESNA EG [Suspect]
     Active Substance: MESNA
     Route: 042
     Dates: start: 20161107, end: 20161107
  32. AMIKLIN [Suspect]
     Active Substance: AMIKACIN SULFATE
     Indication: PRODUCT USED FOR UNKNOWN INDICATION
     Route: 065
     Dates: start: 20161108, end: 20161108
  33. ENDOXAN 1000 MG, POUDRE POUR SOLUTION INJECTABLE [Suspect]
     Active Substance: CYCLOPHOSPHAMIDE
     Indication: BONE MARROW CONDITIONING REGIMEN
     Dosage: 4 COURSES OF R-CHOP WITH METHOTREXATE
     Route: 065
     Dates: start: 2016
  34. RITUXIMAB. [Suspect]
     Active Substance: RITUXIMAB
     Indication: HIGH GRADE B-CELL LYMPHOMA BURKITT-LIKE LYMPHOMA
     Dosage: 2 COURSES OF R-CHOP PROTOCOL
     Route: 065
     Dates: start: 2016
  35. RITUXIMAB. [Suspect]
     Active Substance: RITUXIMAB
     Dosage: 4 COURSES OF R-CHOP WITH METHOTREXATE
     Route: 065
     Dates: start: 2016
  36. DOXORUBICIN [Suspect]
     Active Substance: DOXORUBICIN
     Dosage: 4 COURSES OF R-CHOP WITH METHOTREXATE
     Route: 065
     Dates: start: 2016
  37. DOXORUBICIN [Suspect]
     Active Substance: DOXORUBICIN
     Route: 065
     Dates: start: 20161010
  38. VINCRISTINE [Suspect]
     Active Substance: VINCRISTINE
     Indication: HIGH GRADE B-CELL LYMPHOMA BURKITT-LIKE LYMPHOMA
     Dosage: 2 COURSES OF R-CHOP PROTOCOL
     Route: 065
     Dates: start: 2016
  39. PREDNISOLONE. [Suspect]
     Active Substance: PREDNISOLONE
     Indication: HIGH GRADE B-CELL LYMPHOMA BURKITT-LIKE LYMPHOMA
     Dosage: 2 COURSES OF R-CHOP PROTOCOL
     Route: 065
     Dates: start: 2016
  40. PREDNISOLONE. [Suspect]
     Active Substance: PREDNISOLONE
     Dosage: 4 COURSES OF R-CHOP WITH METHOTREXATE
     Route: 065
     Dates: start: 2016
  41. ZOPHREN [Suspect]
     Active Substance: ONDANSETRON
     Route: 042
     Dates: start: 20161105, end: 20161105
  42. ZOPHREN [Suspect]
     Active Substance: ONDANSETRON
     Route: 042
     Dates: start: 20161107, end: 20161107
  43. AXEPIM [Suspect]
     Active Substance: CEFEPIME HYDROCHLORIDE
     Route: 065
     Dates: start: 20161109, end: 20161109
  44. SMECTA [Suspect]
     Active Substance: MONTMORILLONITE
     Route: 065
     Dates: start: 20161108, end: 20161108
  45. TIORFAN [Suspect]
     Active Substance: RACECADOTRIL
     Indication: PRODUCT USED FOR UNKNOWN INDICATION
     Route: 065
     Dates: start: 20161107, end: 20161107
  46. ETOPOPHOS [Suspect]
     Active Substance: ETOPOSIDE PHOSPHATE
     Dosage: LYOPHILISATE FOR PARENTERAL USE (INFUSION), CONDITIONING COURSE ACCORDING TO BEAC PROTOCOL
     Route: 042
     Dates: start: 20161106, end: 20161106
  47. ZOPHREN [Suspect]
     Active Substance: ONDANSETRON
     Route: 042
     Dates: start: 20161106, end: 20161106
  48. AXEPIM [Suspect]
     Active Substance: CEFEPIME HYDROCHLORIDE
     Indication: PRODUCT USED FOR UNKNOWN INDICATION
     Route: 065
     Dates: start: 20161108, end: 20161108
  49. TIORFAN [Suspect]
     Active Substance: RACECADOTRIL
     Route: 065
     Dates: start: 20161108, end: 20161108
  50. BACTRIM [Suspect]
     Active Substance: SULFAMETHOXAZOLE\TRIMETHOPRIM
     Indication: PROPHYLAXIS
     Route: 065
     Dates: end: 20161126
  51. ZELITREX [Suspect]
     Active Substance: VALACYCLOVIR HYDROCHLORIDE
     Indication: PROPHYLAXIS
     Route: 065

REACTIONS (10)
  - Anaemia [Unknown]
  - Oedema peripheral [Unknown]
  - Febrile bone marrow aplasia [Recovered/Resolved]
  - Pulmonary toxicity [Recovering/Resolving]
  - Lung infection [Unknown]
  - Tachypnoea [Unknown]
  - Myocarditis [Recovering/Resolving]
  - Acute kidney injury [Recovering/Resolving]
  - Lung disorder [Unknown]
  - Orthopnoea [Unknown]

NARRATIVE: CASE EVENT DATE: 201611
